FAERS Safety Report 17109405 (Version 2)
Quarter: 2019Q4

REPORT INFORMATION
  Report Type: Report from Study
  Country: None (occurrence: IE)
  Receive Date: 20191204
  Receipt Date: 20191210
  Transmission Date: 20200122
  Serious: Yes (Hospitalization)
  Sender: FDA-Public Use
  Company Number: IE-ABBVIE-19K-229-3177604-00

PATIENT
  Sex: Male

DRUGS (10)
  1. IBUPROFEN. [Concomitant]
     Active Substance: IBUPROFEN
     Indication: PRODUCT USED FOR UNKNOWN INDICATION
     Dosage: PRN (AS REQUIRED)
     Route: 050
  2. SYNAGIS [Suspect]
     Active Substance: PALIVIZUMAB
     Dosage: SECOND SEASON
     Route: 030
     Dates: start: 20190925, end: 20190925
  3. SYNAGIS [Suspect]
     Active Substance: PALIVIZUMAB
     Dosage: FIRST SEASON
     Route: 030
     Dates: start: 20190315, end: 20190315
  4. SYNAGIS [Suspect]
     Active Substance: PALIVIZUMAB
     Dosage: FIRST SEASON
     Route: 030
     Dates: start: 20190118, end: 20190118
  5. VITAMIN D [Concomitant]
     Active Substance: VITAMIN D NOS
     Indication: PRODUCT USED FOR UNKNOWN INDICATION
     Route: 050
  6. SYNAGIS [Suspect]
     Active Substance: PALIVIZUMAB
     Indication: LUNG DISORDER
     Dosage: FIRST SEASON
     Route: 030
     Dates: start: 20181221, end: 20181221
  7. SYNAGIS [Suspect]
     Active Substance: PALIVIZUMAB
     Dosage: SECOND SEASON
     Route: 030
     Dates: start: 20191030, end: 20191030
  8. RANITIDINE. [Concomitant]
     Active Substance: RANITIDINE
     Indication: PRODUCT USED FOR UNKNOWN INDICATION
     Route: 050
  9. PARACETAMOL [Concomitant]
     Active Substance: ACETAMINOPHEN
     Indication: PRODUCT USED FOR UNKNOWN INDICATION
     Dosage: PRN (AS REQUIRED)
     Route: 050
  10. LACTULOSE. [Concomitant]
     Active Substance: LACTULOSE
     Indication: PRODUCT USED FOR UNKNOWN INDICATION
     Dosage: PRN (AS REQUIRED)
     Route: 050

REACTIONS (3)
  - Viral infection [Unknown]
  - Product use in unapproved indication [Unknown]
  - Malaise [Unknown]

NARRATIVE: CASE EVENT DATE: 2019
